FAERS Safety Report 9304604 (Version 1)
Quarter: 2013Q2

REPORT INFORMATION
  Report Type: Spontaneous
  Country: US (occurrence: US)
  Receive Date: 20130523
  Receipt Date: 20130523
  Transmission Date: 20140414
  Serious: Yes (Other)
  Sender: FDA-Public Use
  Company Number: US-BIOGENIDEC-2013BI045050

PATIENT
  Age: 55 Year
  Sex: Female

DRUGS (16)
  1. TECFIDERA [Suspect]
     Indication: MULTIPLE SCLEROSIS
     Route: 048
     Dates: start: 20130414
  2. ONDANSETRON ODT [Concomitant]
     Dates: start: 20130426
  3. ONDANSETRON ODT [Concomitant]
     Dates: start: 20130427
  4. MOVIPREP SOLUTION [Concomitant]
     Dates: start: 20130419
  5. FERROUS SULFATE [Concomitant]
     Dates: start: 20130417
  6. LEVOTHYROXINE [Concomitant]
     Dates: start: 20130207
  7. LEVOTHYROXINE [Concomitant]
     Dates: start: 20130417
  8. PREVACID [Concomitant]
     Dates: start: 20130227
  9. ALPRAZOLAM [Concomitant]
     Dates: start: 20130207
  10. VENLAFAXINE [Concomitant]
     Dates: start: 20130206
  11. IBUPROPHEN [Concomitant]
     Dates: start: 20130202
  12. ATORVASTATIN [Concomitant]
     Dates: start: 20130107, end: 20130411
  13. NEXIUM [Concomitant]
     Dates: start: 20120820
  14. VENLAFAXINE ER [Concomitant]
     Dates: start: 20120730
  15. ESTRACE VAGINAL CREAM [Concomitant]
     Dates: start: 20120530
  16. SULFAME/TRIMETHOPRIM [Concomitant]
     Dates: start: 20130409

REACTIONS (1)
  - Gastritis erosive [Unknown]
